FAERS Safety Report 16395220 (Version 1)
Quarter: 2019Q3

REPORT INFORMATION
  Report Type: Spontaneous
  Country: US (occurrence: US)
  Receive Date: 20190604
  Receipt Date: 20190604
  Transmission Date: 20191004
  Serious: Yes (Life-Threatening)
  Sender: FDA-Public Use
  Company Number: None

PATIENT
  Age: 68 Year
  Sex: Female
  Weight: 54 kg

DRUGS (6)
  1. QUETIAPINE. [Concomitant]
     Active Substance: QUETIAPINE
     Dates: start: 20160326
  2. TRINTELLIX [Suspect]
     Active Substance: VORTIOXETINE HYDROBROMIDE
     Indication: BIPOLAR II DISORDER
     Route: 048
  3. LITHIUM CARBONATE. [Concomitant]
     Active Substance: LITHIUM CARBONATE
     Dates: start: 20150428
  4. OLANZAPINE. [Concomitant]
     Active Substance: OLANZAPINE
     Dates: start: 20170316
  5. MODAFANIL [Concomitant]
     Active Substance: MODAFINIL
     Dates: start: 20170511
  6. OXCARBAZEPINE. [Concomitant]
     Active Substance: OXCARBAZEPINE
     Dates: start: 20171207

REACTIONS (19)
  - Terminal insomnia [None]
  - Social avoidant behaviour [None]
  - Sedation [None]
  - Retrograde amnesia [None]
  - Sluggishness [None]
  - Loss of consciousness [None]
  - Feeling abnormal [None]
  - Hyperacusis [None]
  - Head injury [None]
  - Nervousness [None]
  - Somnambulism [None]
  - Headache [None]
  - Fatigue [None]
  - Disturbance in attention [None]
  - Contusion [None]
  - Anterograde amnesia [None]
  - Balance disorder [None]
  - Irritability [None]
  - Fall [None]

NARRATIVE: CASE EVENT DATE: 20190531
